FAERS Safety Report 14770192 (Version 1)
Quarter: 2018Q2

REPORT INFORMATION
  Report Type: Spontaneous
  Country: US (occurrence: US)
  Receive Date: 20180417
  Receipt Date: 20180417
  Transmission Date: 20180711
  Serious: Yes (Death, Hospitalization, Other)
  Sender: FDA-Public Use
  Company Number: US-JNJFOC-20180417953

PATIENT

DRUGS (1)
  1. FENTANYL. [Suspect]
     Active Substance: FENTANYL
     Indication: PRODUCT USED FOR UNKNOWN INDICATION
     Route: 065

REACTIONS (12)
  - Pneumonia aspiration [Unknown]
  - Acute lung injury [Unknown]
  - Seizure [Unknown]
  - Agitation [Unknown]
  - Death [Fatal]
  - Hyperreflexia [Unknown]
  - Overdose [Unknown]
  - Delirium [Unknown]
  - Rhabdomyolysis [Unknown]
  - Respiratory depression [Unknown]
  - Acute kidney injury [Unknown]
  - Depressed level of consciousness [Unknown]
